FAERS Safety Report 9701674 (Version 1)
Quarter: 2013Q4

REPORT INFORMATION
  Report Type: Spontaneous
  Country: US (occurrence: US)
  Receive Date: 20131119
  Receipt Date: 20131119
  Transmission Date: 20140711
  Serious: No
  Sender: FDA-Public Use
  Company Number: US-SAVIENT-2013S1000005

PATIENT
  Sex: Male

DRUGS (2)
  1. KRYSTEXXA [Suspect]
     Indication: GOUT
     Route: 042
     Dates: start: 20121213, end: 20121213
  2. KRYSTEXXA [Suspect]
     Indication: GOUT
     Route: 042
     Dates: start: 201212, end: 201212

REACTIONS (1)
  - Gout [Unknown]
